FAERS Safety Report 17611133 (Version 2)
Quarter: 2020Q2

REPORT INFORMATION
  Report Type: Report from Study
  Country: US (occurrence: US)
  Receive Date: 20200401
  Receipt Date: 20200609
  Transmission Date: 20200713
  Serious: Yes (Other)
  Sender: FDA-Public Use
  Company Number: US-MYLANLABS-2020M1032286

PATIENT
  Sex: Female
  Weight: 60.33 kg

DRUGS (1)
  1. AMBRISENTAN TABLETS [Suspect]
     Active Substance: AMBRISENTAN
     Indication: PULMONARY ARTERIAL HYPERTENSION
     Dosage: 10 MILLIGRAM, QD
     Dates: start: 2012

REACTIONS (2)
  - Asthenia [Recovered/Resolved]
  - Drug ineffective [Unknown]
